FAERS Safety Report 6604748-X (Version None)
Quarter: 2010Q1

REPORT INFORMATION
  Report Type: 
  Country: None (occurrence: None)
  Receive Date: 20100226
  Receipt Date: 20091209
  Transmission Date: 20100710
  Serious: No
  Sender: FDA-Public Use
  Company Number: US-BRISTOL-MYERS SQUIBB COMPANY-14888069

PATIENT
  Age: 46 Year
  Sex: Female

DRUGS (2)
  1. ONGLYZA [Suspect]
     Dates: start: 20091104
  2. METFORMIN HCL [Concomitant]

REACTIONS (1)
  - OEDEMA MOUTH [None]
